FAERS Safety Report 6610655-9 (Version None)
Quarter: 2010Q1

REPORT INFORMATION
  Report Type: 
  Country: None (occurrence: None)
  Receive Date: 20100302
  Receipt Date: 20100223
  Transmission Date: 20100710
  Serious: Yes (Hospitalization)
  Sender: FDA-Public Use
  Company Number: A0845999A

PATIENT
  Age: 58 Year
  Sex: Male
  Weight: 92.7 kg

DRUGS (1)
  1. AVANDIA [Suspect]
     Dosage: 8MG TWICE PER DAY
     Route: 048
     Dates: end: 20070601

REACTIONS (2)
  - CONDITION AGGRAVATED [None]
  - MYOCARDIAL INFARCTION [None]
